FAERS Safety Report 9365127 (Version 1)
Quarter: 2013Q2

REPORT INFORMATION
  Report Type: Spontaneous
  Country: AU (occurrence: AU)
  Receive Date: 20130624
  Receipt Date: 20130624
  Transmission Date: 20140414
  Serious: Yes (Other)
  Sender: FDA-Public Use
  Company Number: PHHY2013AU062086

PATIENT
  Age: 77 Year
  Sex: Female

DRUGS (8)
  1. OXYCODONE HYDROCHLORIDE [Suspect]
     Indication: PAIN
     Dosage: 50 MG, BID
  2. OXYCODONE HYDROCHLORIDE [Interacting]
     Dosage: 5 MG, PRN
  3. CITALOPRAM [Interacting]
  4. ESOMEPRAZOLE [Concomitant]
     Dosage: 40 MG, BID
  5. ESOMEPRAZOLE [Concomitant]
     Dosage: 40 MG, QD
  6. TEMAZEPAM [Concomitant]
     Dosage: 10 MG, UNK
  7. DOCUSATE [Concomitant]
     Dosage: 100 MG, UNK
  8. SENNOSIDE [Concomitant]
     Dosage: 16 MG, BID

REACTIONS (6)
  - Serotonin syndrome [Recovered/Resolved]
  - Tremor [Recovered/Resolved]
  - Confusional state [Recovered/Resolved]
  - Asthenia [Recovered/Resolved]
  - Coordination abnormal [Recovered/Resolved]
  - Drug interaction [Recovered/Resolved]
